FAERS Safety Report 25922742 (Version 3)
Quarter: 2025Q4

REPORT INFORMATION
  Report Type: Spontaneous
  Country: US (occurrence: US)
  Receive Date: 20251015
  Receipt Date: 20251205
  Transmission Date: 20260117
  Serious: No
  Sender: EMD SERONO INC
  Company Number: US-Merck Healthcare KGaA-2025051024

PATIENT
  Sex: Male

DRUGS (2)
  1. SEROSTIM [Suspect]
     Active Substance: SOMATROPIN
     Indication: Cachexia
     Dosage: INJECT 1 VIAL (6MG) SUBCUTANEOUSLY EVERY DAY
  2. SEROSTIM [Suspect]
     Active Substance: SOMATROPIN
     Dates: start: 202510

REACTIONS (5)
  - Malaise [Recovered/Resolved]
  - Fatigue [Not Recovered/Not Resolved]
  - Fluid retention [Not Recovered/Not Resolved]
  - Weight increased [Not Recovered/Not Resolved]
  - Adverse drug reaction [Recovered/Resolved]
